FAERS Safety Report 14779472 (Version 2)
Quarter: 2018Q2

REPORT INFORMATION
  Report Type: Report from Study
  Country: US (occurrence: US)
  Receive Date: 20180419
  Receipt Date: 20180530
  Transmission Date: 20180711
  Serious: Yes (Hospitalization)
  Sender: FDA-Public Use
  Company Number: US-BAYER-2018-071586

PATIENT
  Age: 71 Year
  Sex: Male

DRUGS (2)
  1. XOFIGO [Suspect]
     Active Substance: RADIUM RA-223 DICHLORIDE
     Indication: HORMONE-REFRACTORY PROSTATE CANCER
     Dosage: 163.90 ?CI ONCE IN 28 DAYS
     Route: 042
     Dates: start: 20180316, end: 20180316
  2. XOFIGO [Suspect]
     Active Substance: RADIUM RA-223 DICHLORIDE
     Indication: METASTASES TO BONE
     Dosage: 148.40 ?CI ONCE IN 28 DAYS
     Route: 042
     Dates: start: 20180427, end: 20180427

REACTIONS (3)
  - Hormone-refractory prostate cancer [None]
  - Disease complication [None]
  - Platelet count decreased [Unknown]
